FAERS Safety Report 9094379 (Version 1)
Quarter: 2013Q1

REPORT INFORMATION
  Report Type: Spontaneous
  Country: US (occurrence: None)
  Receive Date: 20130215
  Receipt Date: 20130215
  Transmission Date: 20140127
  Serious: No
  Sender: FDA-Public Use
  Company Number: None

PATIENT
  Sex: Male
  Weight: 82.1 kg

DRUGS (2)
  1. LAMOTRIGINE 200 MG TABLETS [Suspect]
     Route: 048
     Dates: start: 20130130
  2. LAMOTRIGINE [Suspect]
     Route: 048

REACTIONS (2)
  - Insomnia [None]
  - Aggression [None]
